FAERS Safety Report 23749988 (Version 1)
Quarter: 2024Q2

REPORT INFORMATION
  Report Type: Spontaneous
  Country: US (occurrence: US)
  Receive Date: 20240417
  Receipt Date: 20240417
  Transmission Date: 20240716
  Serious: Yes (Hospitalization, Other)
  Sender: FDA-Public Use
  Company Number: US-BRISTOL-MYERS SQUIBB COMPANY-2024-057586

PATIENT
  Age: 42 Year
  Sex: Female

DRUGS (4)
  1. BELATACEPT [Suspect]
     Active Substance: BELATACEPT
     Indication: Kidney transplant rejection
  2. MYCOPHENOLIC ACID [Suspect]
     Active Substance: MYCOPHENOLIC ACID
     Indication: Kidney transplant rejection
  3. METHYLPREDNISOLONE [Suspect]
     Active Substance: METHYLPREDNISOLONE
     Indication: Kidney transplant rejection
     Route: 042
  4. PREDNISONE [Concomitant]
     Active Substance: PREDNISONE
     Indication: Kidney transplant rejection

REACTIONS (2)
  - Histoplasmosis [Recovering/Resolving]
  - Haemophagocytic lymphohistiocytosis [Recovering/Resolving]
